FAERS Safety Report 15677759 (Version 1)
Quarter: 2018Q4

REPORT INFORMATION
  Report Type: Spontaneous
  Country: GB (occurrence: GB)
  Receive Date: 20181130
  Receipt Date: 20181130
  Transmission Date: 20190205
  Serious: Yes (Other)
  Sender: FDA-Public Use
  Company Number: GB-PFIZER INC-2018485907

PATIENT
  Age: 59 Year
  Sex: Female
  Weight: 122.46 kg

DRUGS (1)
  1. FRAGMIN [Suspect]
     Active Substance: DALTEPARIN SODIUM
     Indication: NEPHRECTOMY
     Dosage: 0.4 ML, 1X/DAY
     Route: 051
     Dates: start: 20181006, end: 20181031

REACTIONS (3)
  - Injection site erythema [Not Recovered/Not Resolved]
  - Pruritus generalised [Not Recovered/Not Resolved]
  - Injection site swelling [Not Recovered/Not Resolved]

NARRATIVE: CASE EVENT DATE: 20181006
